FAERS Safety Report 5242172-5 (Version None)
Quarter: 2007Q1

REPORT INFORMATION
  Report Type: 
  Country: None (occurrence: None)
  Receive Date: 20070220
  Receipt Date: 20070209
  Transmission Date: 20070707
  Serious: Yes (Death, Hospitalization)
  Sender: FDA-Public Use
  Company Number: US-JNJFOC-20061106030

PATIENT
  Sex: Male
  Weight: 100.25 kg

DRUGS (3)
  1. REMICADE [Suspect]
  2. REMICADE [Suspect]
     Indication: RHEUMATOID ARTHRITIS
  3. METHOTREXATE [Concomitant]
     Indication: RHEUMATOID ARTHRITIS

REACTIONS (6)
  - BLOOD PRESSURE DECREASED [None]
  - COCCIDIOIDOMYCOSIS [None]
  - CYTOMEGALOVIRUS INFECTION [None]
  - HYPERCALCAEMIA [None]
  - MENTAL STATUS CHANGES [None]
  - RESPIRATORY ARREST [None]
